FAERS Safety Report 7199125-X (Version None)
Quarter: 2010Q4

REPORT INFORMATION
  Report Type: 
  Country: None (occurrence: None)
  Receive Date: 20101126
  Receipt Date: 20100607
  Transmission Date: 20110411
  Serious: Yes (Other)
  Sender: FDA-Public Use
  Company Number: CIP10001256

PATIENT
  Age: 64 Year
  Sex: Female

DRUGS (1)
  1. ACTONEL [Suspect]
     Dosage: ORAL
     Route: 048
     Dates: start: 20030101

REACTIONS (6)
  - CONDITION AGGRAVATED [None]
  - EROSIVE OESOPHAGITIS [None]
  - IMPAIRED HEALING [None]
  - OESOPHAGEAL HAEMORRHAGE [None]
  - OESOPHAGEAL INJURY [None]
  - OESOPHAGEAL PAIN [None]
